FAERS Safety Report 10069998 (Version 1)
Quarter: 2014Q2

REPORT INFORMATION
  Report Type: Spontaneous
  Country: US (occurrence: US)
  Receive Date: 20140410
  Receipt Date: 20140410
  Transmission Date: 20141212
  Serious: No
  Sender: FDA-Public Use
  Company Number: US-JNJFOC-20140307739

PATIENT
  Age: 22 Year
  Sex: Male
  Weight: 68.04 kg

DRUGS (2)
  1. INVEGA SUSTENNA [Suspect]
     Indication: PSYCHOTIC DISORDER
     Route: 030
     Dates: start: 201403
  2. INVEGA [Concomitant]
     Indication: PSYCHOTIC DISORDER
     Route: 048
     Dates: start: 201403

REACTIONS (1)
  - Drug dose omission [Unknown]
